FAERS Safety Report 8343563 (Version 2)
Quarter: 2014Q2

REPORT INFORMATION
  Report Type: Report from Study
  Country: DE (occurrence: DE)
  Receive Date: 20120119
  Receipt Date: 20140409
  Transmission Date: 20141212
  Serious: Yes (Hospitalization)
  Sender: FDA-Public Use
  Company Number: DE-MILLENNIUM PHARMACEUTICALS, INC.-2012-00240

PATIENT
  Sex: 0

DRUGS (4)
  1. VELCADE [Suspect]
     Indication: PLASMA CELL MYELOMA
     Dosage: UNK
     Route: 065
     Dates: start: 20110829, end: 20111113
  2. MELPHALAN [Concomitant]
     Indication: PLASMA CELL MYELOMA
     Dosage: UNK
     Dates: start: 20110829, end: 20110922
  3. PREDNISOLONE [Concomitant]
     Indication: PLASMA CELL MYELOMA
     Dosage: UNK
     Dates: start: 20110829, end: 20110922
  4. PAMIDRONATE [Concomitant]
     Dosage: UNK
     Dates: start: 20110901

REACTIONS (2)
  - Diverticulitis [Recovered/Resolved]
  - Pancytopenia [Recovered/Resolved]
